FAERS Safety Report 17416113 (Version 3)
Quarter: 2020Q3

REPORT INFORMATION
  Report Type: Report from Study
  Country: CO (occurrence: CO)
  Receive Date: 20200213
  Receipt Date: 20200925
  Transmission Date: 20201102
  Serious: Yes (Hospitalization)
  Sender: FDA-Public Use
  Company Number: CO-JNJFOC-20200209300

PATIENT
  Age: 46 Year
  Sex: Female
  Weight: 45 kg

DRUGS (8)
  1. FOLIC ACID. [Concomitant]
     Active Substance: FOLIC ACID
  2. SIMPONI [Suspect]
     Active Substance: GOLIMUMAB
     Dosage: THE LAST APPLICATION OF GOLIMUMAB WAS ON  10?SEP?2020
     Route: 058
     Dates: start: 20200305
  3. NAPROXEN. [Concomitant]
     Active Substance: NAPROXEN
  4. VITAMIN C [Concomitant]
     Active Substance: ASCORBIC ACID
  5. SIMPONI [Suspect]
     Active Substance: GOLIMUMAB
     Indication: RHEUMATOID ARTHRITIS
     Dosage: LAST DOSE OF GOLIMUMAB ON 17?JAN?2020
     Route: 058
     Dates: start: 20180115, end: 20200117
  6. LEFLUNOMIDE. [Concomitant]
     Active Substance: LEFLUNOMIDE
  7. FERROUS SULFATE. [Concomitant]
     Active Substance: FERROUS SULFATE
  8. CALCITRIOL. [Concomitant]
     Active Substance: CALCITRIOL

REACTIONS (3)
  - Vaginal haemorrhage [Recovering/Resolving]
  - Haemoglobin decreased [Recovering/Resolving]
  - Pain in extremity [Recovering/Resolving]

NARRATIVE: CASE EVENT DATE: 20200126
